FAERS Safety Report 7915699-2 (Version None)
Quarter: 2011Q4

REPORT INFORMATION
  Report Type: 
  Country: None (occurrence: None)
  Receive Date: 20111115
  Receipt Date: 20111109
  Transmission Date: 20120403
  Serious: Yes (Hospitalization)
  Sender: FDA-Public Use
  Company Number: US-GLAXOSMITHKLINE-A0953065A

PATIENT
  Age: 44 Year
  Sex: Female

DRUGS (1)
  1. VOTRIENT [Suspect]
     Indication: MALIGNANT SOFT TISSUE NEOPLASM
     Dosage: 600MG PER DAY
     Route: 065

REACTIONS (1)
  - HOSPITALISATION [None]
